FAERS Safety Report 10355655 (Version 1)
Quarter: 2014Q3

REPORT INFORMATION
  Report Type: Spontaneous
  Country: PL (occurrence: PL)
  Receive Date: 20140731
  Receipt Date: 20140731
  Transmission Date: 20150326
  Serious: Yes (Other)
  Sender: FDA-Public Use
  Company Number: PL-ASTRAZENECA-2014SE53881

PATIENT
  Age: 46 Year
  Sex: Female

DRUGS (2)
  1. KWETIAPIN [Suspect]
     Active Substance: QUETIAPINE
     Indication: BIPOLAR DISORDER
     Route: 048
  2. ARIPIPRAZOL [Suspect]
     Active Substance: ARIPIPRAZOLE
     Indication: MANIA

REACTIONS (2)
  - Muscle hypertrophy [Unknown]
  - Tardive dyskinesia [Unknown]
